FAERS Safety Report 23438097 (Version 4)
Quarter: 2024Q4

REPORT INFORMATION
  Report Type: Spontaneous
  Country: US (occurrence: US)
  Receive Date: 20240124
  Receipt Date: 20241224
  Transmission Date: 20250114
  Serious: No
  Sender: BIOGEN
  Company Number: US-BIOGEN-2024BI01246816

PATIENT
  Age: 63 Year
  Sex: Female

DRUGS (1)
  1. TYSABRI [Suspect]
     Active Substance: NATALIZUMAB
     Indication: Multiple sclerosis
     Route: 050
     Dates: start: 20140528

REACTIONS (4)
  - Cognitive disorder [Unknown]
  - Poor venous access [Unknown]
  - Vein disorder [Unknown]
  - Illness [Unknown]

NARRATIVE: CASE EVENT DATE: 20241221
